FAERS Safety Report 6112210-6 (Version None)
Quarter: 2009Q1

REPORT INFORMATION
  Report Type: 
  Country: None (occurrence: None)
  Receive Date: 20090310
  Receipt Date: 20090223
  Transmission Date: 20090719
  Serious: Yes (Other)
  Sender: FDA-Public Use
  Company Number: 2008S1021677

PATIENT
  Age: 32 Year
  Sex: Female

DRUGS (1)
  1. LEVETIRACETAM [Suspect]
     Indication: EPILEPSY
     Dosage: 1500 MG; TWICE A DAY; ORAL
     Route: 048
     Dates: start: 20081114, end: 20081129

REACTIONS (1)
  - GRAND MAL CONVULSION [None]
